FAERS Safety Report 23458890 (Version 2)
Quarter: 2024Q1

REPORT INFORMATION
  Report Type: Spontaneous
  Country: US (occurrence: US)
  Receive Date: 20240131
  Receipt Date: 20240205
  Transmission Date: 20240409
  Serious: Yes (Other)
  Sender: FDA-Public Use
  Company Number: US-UROGEN PHARMA LTD.-2024-UGN-000014

PATIENT

DRUGS (2)
  1. JELMYTO [Suspect]
     Active Substance: MITOMYCIN
     Indication: Transitional cell cancer of the renal pelvis and ureter
     Dosage: 4 MILLILITER, ONCE A WEEK, RETROGRADE THROUGH AN OPEN-ENDED CATHETER (INSTILLATION))
     Dates: start: 20240118, end: 20240118
  2. JELMYTO [Suspect]
     Active Substance: MITOMYCIN
     Dosage: ONCE A WEEK, (INSTILLATION)
     Route: 065
     Dates: start: 20240125, end: 20240125

REACTIONS (1)
  - Bradycardia [Unknown]

NARRATIVE: CASE EVENT DATE: 20240118
